FAERS Safety Report 5485022-4 (Version None)
Quarter: 2007Q4

REPORT INFORMATION
  Report Type: 
  Country: None (occurrence: None)
  Receive Date: 20071015
  Receipt Date: 20071003
  Transmission Date: 20080405
  Serious: Yes (Other)
  Sender: FDA-Public Use
  Company Number: PHBS2007JP16050

PATIENT
  Age: 23 Year
  Sex: Male

DRUGS (8)
  1. PHENYTOIN [Concomitant]
     Indication: CONVULSION
     Route: 048
  2. ATROPINE SULFATE [Concomitant]
     Dosage: 0.5 MG/D
     Route: 030
  3. PROPOFOL [Concomitant]
     Dosage: 90 MG/D
     Route: 065
  4. PROPOFOL [Concomitant]
     Dosage: 110 MG/D
     Route: 065
  5. FENTANYL [Concomitant]
     Dosage: 4 ML/D
     Route: 065
  6. VECURONIUM BROMIDE [Concomitant]
     Dosage: 5 MG/D
     Route: 065
  7. VECURONIUM BROMIDE [Concomitant]
     Dosage: 3 MG/D
     Route: 065
  8. TEGRETOL [Suspect]
     Indication: CONVULSION
     Route: 048

REACTIONS (2)
  - DRUG INTERACTION [None]
  - SPINAL OSTEOARTHRITIS [None]
